FAERS Safety Report 9299359 (Version 2)
Quarter: 2013Q4

REPORT INFORMATION
  Report Type: Spontaneous
  Country: US (occurrence: US)
  Receive Date: 20130520
  Receipt Date: 20131106
  Transmission Date: 20140711
  Serious: Yes (Hospitalization)
  Sender: FDA-Public Use
  Company Number: US-B.I. PHARMACEUTICALS,INC./RIDGEFIELD-2013-BI-13758BP

PATIENT
  Age: 75 Year
  Sex: Female
  Weight: 86.18 kg

DRUGS (18)
  1. PRADAXA [Suspect]
     Indication: ANTICOAGULANT THERAPY
     Dosage: 300 MG
     Dates: start: 20110330, end: 20111030
  2. PRADAXA [Suspect]
     Indication: ATRIAL FIBRILLATION
  3. NEXIUM [Concomitant]
     Indication: GASTROOESOPHAGEAL REFLUX DISEASE
  4. LISINOPRIL [Concomitant]
     Dosage: 20 MG
  5. HYDROCHLOROTHIAZIDE [Concomitant]
     Dosage: 25 MG
  6. LEVO-THYROID [Concomitant]
     Dosage: 0.112 MG
  7. TOPROL XL [Concomitant]
  8. COZAAR [Concomitant]
  9. LIPITOR [Concomitant]
     Dosage: 10 MG
  10. VICODIN [Concomitant]
     Indication: MIGRAINE
  11. MULTIVITAMIN [Concomitant]
  12. ESTRADIOL [Concomitant]
  13. ATIVAN [Concomitant]
     Indication: ANXIETY
  14. PERCOCET [Concomitant]
  15. CLONIDINE [Concomitant]
  16. DILTIAZEM [Concomitant]
  17. NITROGLYCERIN [Concomitant]
  18. PHENERGAN [Concomitant]

REACTIONS (7)
  - Gastrointestinal haemorrhage [Unknown]
  - Colitis ischaemic [Unknown]
  - Shock haemorrhagic [Unknown]
  - Coagulopathy [Unknown]
  - Klebsiella bacteraemia [Recovered/Resolved]
  - Renal failure acute [Unknown]
  - Haemorrhagic anaemia [Unknown]
